FAERS Safety Report 7339910-4 (Version None)
Quarter: 2011Q1

REPORT INFORMATION
  Report Type: 
  Country: None (occurrence: None)
  Receive Date: 20110228
  Receipt Date: 20110217
  Transmission Date: 20110831
  Serious: Yes (Other)
  Sender: FDA-Public Use
  Company Number: 027775

PATIENT
  Sex: Female

DRUGS (1)
  1. VIMPAT [Suspect]
     Dosage: (50 MG, BID) (50 MG, QD)

REACTIONS (3)
  - BALANCE DISORDER [None]
  - SLEEP DISORDER [None]
  - COORDINATION ABNORMAL [None]
